FAERS Safety Report 24371049 (Version 1)
Quarter: 2024Q3

REPORT INFORMATION
  Report Type: Spontaneous
  Country: US (occurrence: US)
  Receive Date: 20240927
  Receipt Date: 20240927
  Transmission Date: 20241017
  Serious: Yes (Death, Life-Threatening)
  Sender: ABBVIE
  Company Number: US-ABBVIE-5939251

PATIENT
  Age: 50 Year
  Sex: Male

DRUGS (1)
  1. VRAYLAR [Suspect]
     Active Substance: CARIPRAZINE
     Indication: Major depression
     Dosage: STRENGTH: 1.5 MG
     Route: 048

REACTIONS (4)
  - Completed suicide [Fatal]
  - Injury [Unknown]
  - Post-traumatic stress disorder [Unknown]
  - Suicide attempt [Unknown]

NARRATIVE: CASE EVENT DATE: 20240101
